FAERS Safety Report 8022235-1 (Version None)
Quarter: 2011Q4

REPORT INFORMATION
  Report Type: 
  Country: None (occurrence: None)
  Receive Date: 20111229
  Receipt Date: 20111221
  Transmission Date: 20120403
  Serious: Yes (Congenital Anomaly)
  Sender: FDA-Public Use
  Company Number: 2011MA018026

PATIENT

DRUGS (2)
  1. LAMOTRIGINE [Concomitant]
  2. LEVETIRACETAM [Suspect]
     Indication: FOETAL EXPOSURE DURING PREGNANCY
     Dosage: 1000 MG, QD, TRPL
     Route: 064

REACTIONS (2)
  - MATERNAL DRUGS AFFECTING FOETUS [None]
  - CONGENITAL CYST [None]
